FAERS Safety Report 7936397-5 (Version None)
Quarter: 2011Q4

REPORT INFORMATION
  Report Type: 
  Country: None (occurrence: None)
  Receive Date: 20111123
  Receipt Date: 20111118
  Transmission Date: 20120403
  Serious: Yes (Other)
  Sender: FDA-Public Use
  Company Number: US-AMGEN-USASP2011041042

PATIENT
  Age: 64 Year
  Sex: Female
  Weight: 68.027 kg

DRUGS (16)
  1. FOLIC ACID [Concomitant]
     Dosage: 1 MG, QD
     Route: 048
  2. VITAMIN E                          /00110501/ [Concomitant]
     Dosage: 400 IU, QD
     Route: 048
  3. LYRICA [Concomitant]
     Dosage: 150 MG, QHS, 50 MG IN THE MORNING
     Route: 048
  4. VALTREX [Concomitant]
     Dosage: 1 G, QD
  5. VITAMIN B COMPLEX CAP [Concomitant]
     Dosage: 1 TABLET OD
  6. METAXALONE [Concomitant]
     Dosage: 800 MG, BID
     Route: 048
  7. MULTIVITAMIN                       /00097801/ [Concomitant]
     Dosage: 1 TAB QD
  8. METHOTREXATE [Concomitant]
     Dosage: 2.5 MG, 6 TABS ORALLY ONCE WEEK
     Route: 048
  9. PENNSAID [Concomitant]
     Dosage: TOPICAL 1.5% 40 DROPS TOPICALLY PRN
  10. DICLOFENAC                         /00372304/ [Concomitant]
     Dosage: 50 MG, BID
     Route: 048
  11. FISH OIL [Concomitant]
     Dosage: 1 CAP BID
  12. ASPIRIN [Concomitant]
     Dosage: 325 MG, QD
  13. PLAQUENIL [Concomitant]
     Dosage: 200 MG, BID
  14. CALCIUM 600 + D [Concomitant]
     Dosage: 600 MG, QD,200 UNITS 1 TAB ORALLY
     Route: 048
  15. ENBREL [Suspect]
     Indication: RHEUMATOID ARTHRITIS
     Dosage: 50 MG, QWK
     Route: 058
     Dates: start: 20110808
  16. VITAMIN D [Concomitant]
     Dosage: 4000 IU, QD

REACTIONS (11)
  - OEDEMA PERIPHERAL [None]
  - MUSCULOSKELETAL STIFFNESS [None]
  - ARTHRALGIA [None]
  - JOINT SWELLING [None]
  - THORACIC VERTEBRAL FRACTURE [None]
  - BURSITIS [None]
  - FALL [None]
  - FATIGUE [None]
  - OSTEOARTHRITIS [None]
  - MUSCULAR WEAKNESS [None]
  - NECK PAIN [None]
